FAERS Safety Report 4278185-X (Version None)
Quarter: 2004Q1

REPORT INFORMATION
  Report Type: 
  Country: None (occurrence: None)
  Receive Date: 20040120
  Receipt Date: 20040107
  Transmission Date: 20041129
  Serious: Yes (Hospitalization)
  Sender: FDA-Public Use
  Company Number: 03P-163-0244260-00

PATIENT
  Age: 75 Year
  Sex: Female

DRUGS (7)
  1. HUMIRA [Suspect]
     Indication: RHEUMATOID ARTHRITIS
     Dosage: 40 MG, 1 IN 2 WK, SUBCUTANEOUS
     Route: 058
     Dates: start: 20031001, end: 20031209
  2. ATORVASTATIN [Concomitant]
  3. DYAZIDE [Concomitant]
  4. OMEPRAZOLE [Concomitant]
  5. LEVOTHYROXINE SODIUM [Concomitant]
  6. DIOVAN [Concomitant]
  7. PREDNISONE [Concomitant]

REACTIONS (9)
  - ABSCESS INTESTINAL [None]
  - BRONCHITIS [None]
  - CHILLS [None]
  - DIVERTICULAR PERFORATION [None]
  - DIVERTICULUM [None]
  - FEELING COLD [None]
  - NIGHT SWEATS [None]
  - PYREXIA [None]
  - VAGINAL DISCHARGE [None]
